FAERS Safety Report 5724498-1 (Version None)
Quarter: 2008Q2

REPORT INFORMATION
  Report Type: 
  Country: None (occurrence: None)
  Receive Date: 20080429
  Receipt Date: 20080422
  Transmission Date: 20081010
  Serious: Yes (Life-Threatening)
  Sender: FDA-Public Use
  Company Number: CERZ-1000195

PATIENT
  Age: 48 Year
  Sex: Male
  Weight: 89 kg

DRUGS (5)
  1. CEREZYME [Suspect]
     Indication: GAUCHER'S DISEASE
     Dosage: 2600 U, INTRAVENOUS
     Route: 042
     Dates: start: 20080218
  2. PREGABALIN (PREGABALIN) [Concomitant]
  3. PROVIGIL [Concomitant]
  4. CODEINE PHOSPHATE (CODEINE PHOSPHATE) [Concomitant]
  5. ORAMORPH SR [Concomitant]

REACTIONS (1)
  - GRAND MAL CONVULSION [None]
